FAERS Safety Report 5241052-9 (Version None)
Quarter: 2007Q1

REPORT INFORMATION
  Report Type: 
  Country: None (occurrence: None)
  Receive Date: 20070214
  Receipt Date: 20070214
  Transmission Date: 20070707
  Serious: Yes (Hospitalization, Other)
  Sender: FDA-Public Use
  Company Number: None

PATIENT
  Age: 31 Year
  Sex: Male
  Weight: 76.7 kg

DRUGS (9)
  1. DARUNAVIR [Suspect]
     Indication: ACQUIRED IMMUNODEFICIENCY SYNDROME
     Dosage: 600 MG PO BID
     Route: 048
     Dates: start: 20061020, end: 20061101
  2. DARUNAVIR [Suspect]
     Indication: HIV INFECTION
     Dosage: 600 MG PO BID
     Route: 048
     Dates: start: 20061020, end: 20061101
  3. AZITHROMYCIN [Concomitant]
  4. DAPSONE [Concomitant]
  5. FLUCONAZOLE [Concomitant]
  6. ACETAMINOPHEN [Concomitant]
  7. LOPERAMIDE HCL [Concomitant]
  8. NEUTRA-PHOS [Concomitant]
  9. PROMETHAZINE [Concomitant]

REACTIONS (2)
  - PYREXIA [None]
  - RASH [None]
